FAERS Safety Report 6493024-4 (Version None)
Quarter: 2009Q4

REPORT INFORMATION
  Report Type: 
  Country: None (occurrence: None)
  Receive Date: 20091214
  Receipt Date: 20091204
  Transmission Date: 20100525
  Serious: Yes (Life-Threatening)
  Sender: FDA-Public Use
  Company Number: GXKR2009FR13124

PATIENT

DRUGS (1)
  1. AMOXICILLIN [Suspect]
     Dosage: MATERNAL DOSE: 2 G
     Route: 064

REACTIONS (5)
  - APGAR SCORE LOW [None]
  - BRADYCARDIA FOETAL [None]
  - CAESAREAN SECTION [None]
  - ENDOTRACHEAL INTUBATION [None]
  - MATERNAL DRUGS AFFECTING FOETUS [None]
